FAERS Safety Report 8295299 (Version 3)
Quarter: 2013Q2

REPORT INFORMATION
  Report Type: Report from Study
  Country: FR (occurrence: FR)
  Receive Date: 20111216
  Receipt Date: 20130422
  Transmission Date: 20140414
  Serious: Yes (Hospitalization)
  Sender: FDA-Public Use
  Company Number: FR-VERTEX PHARMACEUTICALS INC.-AE-2011-000668

PATIENT
  Age: 74 Year
  Sex: Male
  Weight: 64 kg

DRUGS (11)
  1. VX-950 (TELAPREVIR) [Suspect]
     Indication: HEPATITIS C
     Dosage: 750 MG, TID
     Route: 048
     Dates: start: 20110628, end: 20110816
  2. PEGASYS [Suspect]
     Indication: HEPATITIS C
     Dosage: DOSAGE FORM: INJECTION
     Route: 058
     Dates: start: 20110530, end: 20110816
  3. COPEGUS [Suspect]
     Indication: HEPATITIS C
     Dosage: DOSAGE FORM: TABLET
     Route: 048
     Dates: start: 20110530, end: 20110816
  4. AVLOCARDYL [Concomitant]
     Indication: PROPHYLAXIS
     Dosage: 160 MG, TID
     Route: 048
     Dates: start: 20100124
  5. PERMIXON [Concomitant]
     Indication: BENIGN PROSTATIC HYPERPLASIA
     Dosage: 160 MG, QD
     Route: 048
  6. OMEXEL [Concomitant]
     Indication: BENIGN PROSTATIC HYPERPLASIA
     Dosage: DOSAGE FORM: UNSPECIFIED
  7. DAFALGAN [Concomitant]
     Indication: INFLUENZA
     Dosage: 500 MG, QD
     Dates: start: 20110530, end: 20110816
  8. STILNOX [Concomitant]
     Indication: INSOMNIA
     Dosage: DOSAGE FORM: TABLET, HALF OF A 10 MG TABLET
     Route: 048
     Dates: start: 20110626, end: 20110728
  9. SEROPLEX [Concomitant]
     Indication: DEPRESSION
     Dosage: DOSAGE FORM: UNSPECIFIED
     Route: 048
     Dates: start: 20110713, end: 20110813
  10. NEORECORMON [Concomitant]
     Indication: ANAEMIA
     Dosage: DOSAGE FORM: INJECTION
     Route: 058
     Dates: start: 20110628, end: 20110916
  11. FACTOR VIII [Concomitant]
     Indication: HAEMOPHILIA

REACTIONS (4)
  - General physical health deterioration [Recovered/Resolved]
  - Anaemia [Recovered/Resolved]
  - Anaemia [Recovered/Resolved]
  - Jaundice [Recovered/Resolved]
